FAERS Safety Report 13404166 (Version 1)
Quarter: 2017Q2

REPORT INFORMATION
  Report Type: Report from Study
  Country: CA (occurrence: CA)
  Receive Date: 20170405
  Receipt Date: 20170405
  Transmission Date: 20170830
  Serious: Yes (Hospitalization, Other)
  Sender: FDA-Public Use
  Company Number: CA-BEH-2017079320

PATIENT
  Age: 39 Year
  Sex: Female
  Weight: 77.6 kg

DRUGS (14)
  1. HIZENTRA [Suspect]
     Active Substance: HUMAN IMMUNOGLOBULIN G
     Dosage: UNK
     Route: 058
     Dates: start: 20130501
  2. NAPROXEN. [Concomitant]
     Active Substance: NAPROXEN
  3. ANTIPRURITICS, INCL. ANTIHISTAMINES/90018601/ [Concomitant]
  4. HIZENTRA [Suspect]
     Active Substance: HUMAN IMMUNOGLOBULIN G
     Dosage: 1 ML, UNK
     Route: 058
     Dates: start: 20130429
  5. HIZENTRA [Suspect]
     Active Substance: HUMAN IMMUNOGLOBULIN G
     Dosage: UNK
     Route: 058
     Dates: start: 20130430
  6. CELEBREX [Suspect]
     Active Substance: CELECOXIB
     Indication: ARTHRALGIA
     Dosage: 100 MG, QD
     Route: 048
     Dates: end: 20130417
  7. HIZENTRA [Suspect]
     Active Substance: HUMAN IMMUNOGLOBULIN G
     Dosage: 5 ML, UNK
     Route: 058
     Dates: start: 20130429
  8. IBUPROFEN. [Concomitant]
     Active Substance: IBUPROFEN
  9. ATIVAN [Concomitant]
     Active Substance: LORAZEPAM
  10. HIZENTRA [Suspect]
     Active Substance: HUMAN IMMUNOGLOBULIN G
     Dosage: 4 G, (20ML)
     Route: 058
     Dates: start: 20130415
  11. CONTRACEPTIVES [Concomitant]
     Active Substance: UNSPECIFIED INGREDIENT
  12. REACTINE [Concomitant]
     Active Substance: CETIRIZINE HYDROCHLORIDE
     Dosage: 10 MG, BIW
     Route: 065
  13. TYLENOL [Concomitant]
     Active Substance: ACETAMINOPHEN
  14. HIZENTRA [Suspect]
     Active Substance: HUMAN IMMUNOGLOBULIN G
     Indication: IMMUNODEFICIENCY COMMON VARIABLE
     Dosage: 5 ML, TOT
     Route: 058
     Dates: start: 20130414

REACTIONS (19)
  - Arthralgia [Not Recovered/Not Resolved]
  - Rash [Not Recovered/Not Resolved]
  - Chest pain [Not Recovered/Not Resolved]
  - Tremor [Not Recovered/Not Resolved]
  - Pancreatitis [Not Recovered/Not Resolved]
  - Tremor [Not Recovered/Not Resolved]
  - Nausea [Not Recovered/Not Resolved]
  - Hypersensitivity [Unknown]
  - Flushing [Not Recovered/Not Resolved]
  - Syncope [Not Recovered/Not Resolved]
  - Abdominal pain [Recovered/Resolved]
  - Rash [Not Recovered/Not Resolved]
  - Seizure [Not Recovered/Not Resolved]
  - Presyncope [Unknown]
  - Diarrhoea [Not Recovered/Not Resolved]
  - Dizziness [Recovered/Resolved]
  - Skin warm [Not Recovered/Not Resolved]
  - Back pain [Not Recovered/Not Resolved]
  - Lipase increased [Not Recovered/Not Resolved]

NARRATIVE: CASE EVENT DATE: 201304
